FAERS Safety Report 9999020 (Version 1)
Quarter: 2014Q1

REPORT INFORMATION
  Report Type: Spontaneous
  Country: US (occurrence: None)
  Receive Date: 20140310
  Receipt Date: 20140310
  Transmission Date: 20141002
  Serious: Yes (Life-Threatening)
  Sender: FDA-Public Use
  Company Number: 2014US00164

PATIENT
  Sex: 0

DRUGS (2)
  1. IRINOTECAN [Suspect]
     Dosage: 125 MG/M2 OVER 90 MIN ON DAYS 1 AND 8 EVERY 21 DAYS, INFUSION
  2. BORTEZOMIB [Suspect]
     Dosage: 1.3 MG/M2 ON DAYS 1, 4, 8 AND 11 EVERY 21 DAYS, INTRAVENOUS
     Route: 042

REACTIONS (1)
  - Gastric perforation [None]
